FAERS Safety Report 6466589-6 (Version None)
Quarter: 2009Q4

REPORT INFORMATION
  Report Type: 
  Country: None (occurrence: None)
  Receive Date: 20091202
  Receipt Date: 20091125
  Transmission Date: 20100525
  Serious: Yes (Hospitalization)
  Sender: FDA-Public Use
  Company Number: JP-BAYER-200914346BYL

PATIENT
  Age: 69 Year
  Sex: Male

DRUGS (5)
  1. NEXAVAR [Suspect]
     Indication: HEPATIC NEOPLASM MALIGNANT
     Dosage: TOTAL DAILY DOSE: 800 MG  UNIT DOSE: 200 MG
     Route: 048
     Dates: start: 20091030, end: 20091110
  2. GASMOTIN [Concomitant]
     Indication: ABDOMINAL DISTENSION
     Dosage: UNIT DOSE: 5 MG
     Route: 048
     Dates: start: 20091014
  3. GASCON [Concomitant]
     Indication: ABDOMINAL DISTENSION
     Dosage: UNIT DOSE: 40 MG
     Route: 048
     Dates: start: 20091014
  4. LOXONIN [Concomitant]
     Indication: ABDOMINAL PAIN
     Dosage: UNIT DOSE: 60 MG
     Route: 048
     Dates: start: 20091020
  5. PARIET [Concomitant]
     Indication: PROPHYLAXIS
     Dosage: UNIT DOSE: 10 MG
     Route: 048
     Dates: start: 20091029

REACTIONS (1)
  - ERYTHEMA MULTIFORME [None]
